FAERS Safety Report 8982962 (Version 2)
Quarter: 2013Q1

REPORT INFORMATION
  Report Type: Report from Study
  Country: IE (occurrence: IE)
  Receive Date: 20121221
  Receipt Date: 20130121
  Transmission Date: 20140127
  Serious: Yes (Hospitalization, Other)
  Sender: FDA-Public Use
  Company Number: IE-US-EMD SERONO, INC.-7183271

PATIENT
  Age: 45 None
  Sex: Male

DRUGS (1)
  1. REBIF [Suspect]
     Indication: RELAPSING-REMITTING MULTIPLE SCLEROSIS
     Route: 058
     Dates: start: 20040616

REACTIONS (4)
  - Pneumonia aspiration [Recovered/Resolved]
  - Staphylococcal infection [Recovering/Resolving]
  - Cellulitis [Recovered/Resolved]
  - Vomiting [Unknown]
